FAERS Safety Report 4956257-1 (Version None)
Quarter: 2006Q1

REPORT INFORMATION
  Report Type: 
  Country: None (occurrence: None)
  Receive Date: 20060323
  Receipt Date: 20060320
  Transmission Date: 20060701
  Serious: Yes (Life-Threatening, Hospitalization)
  Sender: FDA-Public Use
  Company Number: 2006-01074

PATIENT
  Age: 83 Year
  Sex: Male

DRUGS (3)
  1. TRELSTAR [Suspect]
     Indication: PROSTATE CANCER
     Dosage: INTRAMUSCULAR
     Route: 030
     Dates: start: 20050301, end: 20050621
  2. PROSTACUR (FLUTAMIDE) [Suspect]
     Dosage: ORAL
     Route: 048
     Dates: start: 20050301, end: 20050621
  3. NICARDIPINE (NICARDIPINE) [Suspect]
     Indication: HYPERTENSION
     Dosage: ORAL
     Route: 048
     Dates: end: 20050621

REACTIONS (2)
  - HEPATIC FAILURE [None]
  - HEPATITIS CHOLESTATIC [None]
